FAERS Safety Report 15703927 (Version 2)
Quarter: 2018Q4

REPORT INFORMATION
  Report Type: Spontaneous
  Country: US (occurrence: US)
  Receive Date: 20181210
  Receipt Date: 20181218
  Transmission Date: 20190205
  Serious: No
  Sender: FDA-Public Use
  Company Number: PHEH2018US050645

PATIENT
  Sex: Male

DRUGS (1)
  1. CLOBETASOL PROPIONATE. [Suspect]
     Active Substance: CLOBETASOL PROPIONATE
     Indication: PRODUCT USED FOR UNKNOWN INDICATION
     Dosage: 30 G, UNK  (2XDAY)
     Route: 065
     Dates: start: 20181127

REACTIONS (2)
  - Product adhesion issue [Unknown]
  - Rash [Unknown]
